FAERS Safety Report 22107532 (Version 4)
Quarter: 2023Q1

REPORT INFORMATION
  Report Type: Report from Study
  Country: FR (occurrence: None)
  Receive Date: 20230317
  Receipt Date: 20230331
  Transmission Date: 20230417
  Serious: Yes (Hospitalization)
  Sender: FDA-Public Use
  Company Number: FR-ROCHE-3305876

PATIENT
  Age: 57 Year
  Sex: Male
  Weight: 89 kg

DRUGS (10)
  1. RITUXIMAB [Suspect]
     Active Substance: RITUXIMAB
     Indication: Chronic lymphocytic leukaemia
     Dosage: RECEIVED MOST RECENT DOSE OF STUDY DRUG PRIOR TO SERIOUS ADVERSE EVENT ON 19/APR/2021?770 MG LAST DO
     Route: 041
     Dates: start: 20201012
  2. CYCLOPHOSPHAMIDE [Suspect]
     Active Substance: CYCLOPHOSPHAMIDE
     Indication: Chronic lymphocytic leukaemia
     Dosage: RECEIVED MOST RECENT DOSE OF STUDY DRUG PRIOR TO SERIOUS ADVERSE EVENT ON 21/APR/2021
     Route: 042
     Dates: start: 20201012
  3. FLUDARABINE PHOSPHATE [Suspect]
     Active Substance: FLUDARABINE PHOSPHATE
     Indication: Chronic lymphocytic leukaemia
     Dosage: RECEIVED MOST RECENT DOSE OF STUDY DRUG PRIOR TO SERIOUS ADVERSE EVENT 21/APR/2021
     Route: 042
     Dates: start: 20201012
  4. CETIRIZINE [Concomitant]
     Active Substance: CETIRIZINE HYDROCHLORIDE
     Route: 048
     Dates: start: 202011
  5. HYDROXYZINE [Concomitant]
     Active Substance: HYDROXYZINE HYDROCHLORIDE
     Indication: Hypersensitivity
     Route: 048
     Dates: start: 202011
  6. PENTAMIDINE [Concomitant]
     Active Substance: PENTAMIDINE
     Indication: Bronchitis
     Route: 055
     Dates: start: 20210524
  7. ALBUTEROL [Concomitant]
     Active Substance: ALBUTEROL
     Indication: Bronchial obstruction
     Dosage: 2 PUFF
     Route: 055
     Dates: start: 20210524
  8. ALBUTEROL [Concomitant]
     Active Substance: ALBUTEROL
     Route: 055
     Dates: start: 202205, end: 202205
  9. IPRATROPIUM [Concomitant]
     Active Substance: IPRATROPIUM
     Route: 055
     Dates: start: 202204, end: 202205
  10. APIXABAN [Concomitant]
     Active Substance: APIXABAN
     Route: 048
     Dates: end: 20221101

REACTIONS (1)
  - Respiratory distress [Recovered/Resolved with Sequelae]

NARRATIVE: CASE EVENT DATE: 20220415
